FAERS Safety Report 8879929 (Version 1)
Quarter: 2012Q4

REPORT INFORMATION
  Report Type: 
  Country: FR (occurrence: FR)
  Receive Date: 20121031
  Receipt Date: 20121031
  Transmission Date: 20130627
  Serious: Yes (Other)
  Sender: FDA-Public Use
  Company Number: FR-ELI_LILLY_AND_COMPANY-FR201206002483

PATIENT
  Age: 44 Year
  Sex: Male
  Weight: 62 kg

DRUGS (8)
  1. ALIMTA [Suspect]
     Indication: LUNG NEOPLASM MALIGNANT
     Dosage: 500 mg/m2, UNK
     Route: 042
     Dates: start: 20120119, end: 20120515
  2. CISPLATIN [Concomitant]
     Indication: LUNG NEOPLASM MALIGNANT
     Dosage: UNK
     Dates: start: 20120111, end: 201204
  3. DEXAMETHASONE [Concomitant]
     Indication: PREMEDICATION
     Dosage: 4 mg, bid
  4. FOLINIC ACID [Concomitant]
     Indication: PREMEDICATION
  5. VITAMIN B12 [Concomitant]
     Indication: PREMEDICATION
     Dosage: UNK, other
  6. CARDENSIEL [Concomitant]
     Indication: TACHYCARDIA
  7. MOPRAL [Concomitant]
     Indication: PROPHYLAXIS
     Dosage: 20 mg, UNK
  8. TRAMADOL [Concomitant]
     Indication: PAIN
     Dosage: UNK, qd

REACTIONS (11)
  - Suspected transmission of an infectious agent via product [Unknown]
  - Hepatocellular injury [Recovered/Resolved]
  - Anaemia [Recovered/Resolved]
  - Thrombocytopenia [Recovered/Resolved]
  - Rash vesicular [Unknown]
  - Neutropenia [Unknown]
  - Skin hyperpigmentation [Unknown]
  - Erythema [Recovered/Resolved]
  - Enanthema [Recovered/Resolved]
  - Folliculitis [Recovered/Resolved]
  - Face oedema [Recovered/Resolved]
